FAERS Safety Report 12124121 (Version 1)
Quarter: 2016Q1

REPORT INFORMATION
  Report Type: Spontaneous
  Country: FR (occurrence: FR)
  Receive Date: 20160229
  Receipt Date: 20160229
  Transmission Date: 20160526
  Serious: Yes (Other)
  Sender: FDA-Public Use
  Company Number: FR-HOSPIRA-3181748

PATIENT
  Age: 16 Year
  Sex: Male

DRUGS (1)
  1. VINCRISTINE SULFATE. [Suspect]
     Active Substance: VINCRISTINE SULFATE
     Indication: HODGKIN^S DISEASE
     Dosage: 4 WEEKLY INFUSIONS DURING INDUCTION, CUMULATIVE DOSE: 4.55 MG/M^2
     Route: 041

REACTIONS (1)
  - Neuropathy peripheral [Recovered/Resolved]
